FAERS Safety Report 14305638 (Version 1)
Quarter: 2017Q4

REPORT INFORMATION
  Report Type: Spontaneous
  Country: PH (occurrence: PH)
  Receive Date: 20171219
  Receipt Date: 20171219
  Transmission Date: 20180321
  Serious: Yes (Other)
  Sender: FDA-Public Use
  Company Number: PH-OTSUKA-BMS-2015-047659

PATIENT
  Sex: Female

DRUGS (8)
  1. LITHIUM CARBONATE. [Suspect]
     Active Substance: LITHIUM CARBONATE
     Indication: BIPOLAR DISORDER
     Dosage: 450 MG, QD
     Route: 065
  2. ARIPIPRAZOLE. [Suspect]
     Active Substance: ARIPIPRAZOLE
     Indication: INTELLECTUAL DISABILITY
  3. LITHIUM CARBONATE. [Suspect]
     Active Substance: LITHIUM CARBONATE
     Indication: INTELLECTUAL DISABILITY
  4. CLUSIVOL                           /00266401/ [Suspect]
     Active Substance: VITAMINS
     Indication: INTELLECTUAL DISABILITY
  5. CLUSIVOL                           /00266401/ [Suspect]
     Active Substance: VITAMINS
     Indication: BIPOLAR DISORDER
     Dosage: 1 DF, QD
     Route: 065
  6. CLUSIVOL /00266401/ [Suspect]
     Active Substance: VITAMINS
     Indication: INTELLECTUAL DISABILITY
  7. ARIPIPRAZOLE. [Suspect]
     Active Substance: ARIPIPRAZOLE
     Indication: BIPOLAR DISORDER
     Dosage: 15 MG, QD
     Route: 060
  8. CLUSIVOL /00266401/ [Suspect]
     Active Substance: VITAMINS
     Indication: BIPOLAR DISORDER
     Dosage: 1 DF, QD
     Route: 065

REACTIONS (4)
  - Drug ineffective [Unknown]
  - Skin discolouration [Unknown]
  - Deafness [Unknown]
  - Dyspnoea [Unknown]
